FAERS Safety Report 4823364-3 (Version None)
Quarter: 2005Q4

REPORT INFORMATION
  Report Type: 
  Country: None (occurrence: None)
  Receive Date: 20051108
  Receipt Date: 20051108
  Transmission Date: 20060501
  Serious: No
  Sender: FDA-Public Use
  Company Number: None

PATIENT
  Age: 60 Year
  Sex: Male

DRUGS (1)
  1. ABILIFY [Suspect]
     Dosage: 15 MG  ONCE DAILY  PO
     Route: 048
     Dates: start: 20050922, end: 20051031

REACTIONS (1)
  - BLOOD GLUCOSE INCREASED [None]
